FAERS Safety Report 9417880 (Version 1)
Quarter: 2013Q3

REPORT INFORMATION
  Report Type: Spontaneous
  Country: US (occurrence: US)
  Receive Date: 20130724
  Receipt Date: 20130724
  Transmission Date: 20140515
  Serious: No
  Sender: FDA-Public Use
  Company Number: US-BAYER-2013-089226

PATIENT
  Sex: Female
  Weight: 59 kg

DRUGS (5)
  1. BACLOFEN [Concomitant]
     Dosage: 10 MG, UNK
  2. CELEXA [Concomitant]
     Dosage: 10 MG, UNK
  3. IBUPROFEN [Concomitant]
  4. BETASERON [Suspect]
     Dosage: 0.25 MG, QOD
     Route: 058
  5. NEURONTIN [Concomitant]
     Dosage: 100 MG, UNK

REACTIONS (2)
  - Muscle spasms [Unknown]
  - Hypoaesthesia [Unknown]
